FAERS Safety Report 11507555 (Version 1)
Quarter: 2015Q3

REPORT INFORMATION
  Report Type: Spontaneous
  Country: US (occurrence: US)
  Receive Date: 20150903
  Receipt Date: 20150903
  Transmission Date: 20151125
  Serious: No
  Sender: FDA-Public Use
  Company Number: US-ELI_LILLY_AND_COMPANY-US200907007275

PATIENT
  Age: 79 Year
  Sex: Female
  Weight: 86.17 kg

DRUGS (3)
  1. NOVOLIN [Concomitant]
     Active Substance: INSULIN HUMAN
     Dosage: 16 U, UNK
  2. NOVOLIN [Concomitant]
     Active Substance: INSULIN HUMAN
     Dosage: 10 U, UNK
  3. HUMALOG [Suspect]
     Active Substance: INSULIN LISPRO
     Dosage: 16 U, UNK

REACTIONS (2)
  - Drug dispensing error [Unknown]
  - Drug dose omission [Unknown]

NARRATIVE: CASE EVENT DATE: 20090423
